FAERS Safety Report 22294439 (Version 2)
Quarter: 2024Q2

REPORT INFORMATION
  Report Type: Spontaneous
  Country: US (occurrence: US)
  Receive Date: 20230508
  Receipt Date: 20240415
  Transmission Date: 20240716
  Serious: No
  Sender: FDA-Public Use
  Company Number: US-ASTELLAS-2022US014806

PATIENT
  Sex: Male

DRUGS (4)
  1. LEXISCAN [Suspect]
     Active Substance: REGADENOSON
     Indication: Scan myocardial perfusion
     Dosage: UNK UNK, OTHER (ONCE)
     Route: 042
     Dates: start: 20220415, end: 20220415
  2. LEXISCAN [Suspect]
     Active Substance: REGADENOSON
     Indication: Scan myocardial perfusion
     Dosage: UNK UNK, OTHER (ONCE)
     Route: 042
     Dates: start: 20220415, end: 20220415
  3. LEXISCAN [Suspect]
     Active Substance: REGADENOSON
     Indication: Scan myocardial perfusion
     Dosage: UNK UNK, OTHER (ONCE)
     Route: 042
     Dates: start: 20220415, end: 20220415
  4. LEXISCAN [Suspect]
     Active Substance: REGADENOSON
     Indication: Scan myocardial perfusion
     Dosage: UNK UNK, OTHER (ONCE)
     Route: 042
     Dates: start: 20220415, end: 20220415

REACTIONS (1)
  - Pain [Recovered/Resolved]

NARRATIVE: CASE EVENT DATE: 20220415
